FAERS Safety Report 8421562-3 (Version None)
Quarter: 2012Q2

REPORT INFORMATION
  Report Type: 
  Country: None (occurrence: None)
  Receive Date: 20120323
  Receipt Date: 20111220
  Transmission Date: 20120825
  Serious: Yes (Other)
  Sender: FDA-Public Use
  Company Number: 163-21880-11122601

PATIENT
  Age: 75 Year
  Sex: Female
  Weight: 65.318 kg

DRUGS (9)
  1. EFFEXOR [Concomitant]
  2. LIPITOR [Concomitant]
  3. ASCORBIC ACID [Concomitant]
  4. PROVENTIL [Concomitant]
  5. NEXIUM [Concomitant]
  6. CALCIUM CARBONATE [Concomitant]
  7. VERAPAMIL [Concomitant]
  8. REVLIMID [Suspect]
     Indication: MULTIPLE MYELOMA
     Dosage: 10 MG, DAILY X21 DAYS, PO
     Route: 048
     Dates: start: 20111102, end: 20111215
  9. ADVAIR HFA [Concomitant]

REACTIONS (2)
  - FATIGUE [None]
  - FULL BLOOD COUNT DECREASED [None]
